FAERS Safety Report 5999726-8 (Version None)
Quarter: 2008Q4

REPORT INFORMATION
  Report Type: 
  Country: None (occurrence: None)
  Receive Date: 20081215
  Receipt Date: 20081203
  Transmission Date: 20090506
  Serious: Yes (Other)
  Sender: FDA-Public Use
  Company Number: US-ROCHE-596933

PATIENT
  Sex: Female

DRUGS (2)
  1. PEG-INTERFERON A-2A (RO 25-8310) [Suspect]
     Dosage: FORM: PREFILLED SYRINGE. IN WEEK 17
     Route: 065
     Dates: start: 20080808
  2. RIBAVIRIN [Suspect]
     Dosage: IN WEEK 17
     Route: 065
     Dates: start: 20080808

REACTIONS (8)
  - APATHY [None]
  - BRONCHITIS [None]
  - DEPRESSION [None]
  - FAHR'S DISEASE [None]
  - FATIGUE [None]
  - HEADACHE [None]
  - PHARYNGITIS STREPTOCOCCAL [None]
  - UPPER RESPIRATORY TRACT INFECTION [None]
